FAERS Safety Report 12423542 (Version 1)
Quarter: 2016Q2

REPORT INFORMATION
  Report Type: Spontaneous
  Country: US (occurrence: US)
  Receive Date: 20160601
  Receipt Date: 20160601
  Transmission Date: 20160815
  Serious: No
  Sender: FDA-Public Use
  Company Number: US-NOVEN PHARMACEUTICALS, INC.-US2015000415

PATIENT
  Age: 8 Year
  Sex: Female

DRUGS (1)
  1. DAYTRANA [Suspect]
     Active Substance: METHYLPHENIDATE
     Indication: ATTENTION DEFICIT/HYPERACTIVITY DISORDER
     Dosage: 20 MG, UNK
     Route: 062
     Dates: start: 201502, end: 201506

REACTIONS (8)
  - Irritability [Unknown]
  - Application site irritation [Unknown]
  - Drug administered at inappropriate site [Unknown]
  - Application site burn [Unknown]
  - Decreased appetite [Unknown]
  - Product quality issue [Unknown]
  - Therapy cessation [Unknown]
  - Application site vesicles [Unknown]

NARRATIVE: CASE EVENT DATE: 2015
